FAERS Safety Report 10979422 (Version 2)
Quarter: 2015Q2

REPORT INFORMATION
  Report Type: Report from Study
  Country: PL (occurrence: PL)
  Receive Date: 20150402
  Receipt Date: 20150410
  Transmission Date: 20150821
  Serious: Yes (Death, Life-Threatening, Other)
  Sender: FDA-Public Use
  Company Number: PL-ASTRAZENECA-2015SE30339

PATIENT
  Age: 60 Year
  Sex: Male

DRUGS (11)
  1. BIVALIRUDIN [Suspect]
     Active Substance: BIVALIRUDIN
     Dosage: LOADING DOSE
     Route: 042
     Dates: start: 20150318
  2. BIVALIRUDIN [Suspect]
     Active Substance: BIVALIRUDIN
     Route: 042
     Dates: start: 20150318
  3. ASPIRIN. [Suspect]
     Active Substance: ASPIRIN
     Indication: THROMBOSIS PROPHYLAXIS
     Dosage: NON AZ PRODUCT
     Route: 048
  4. AMLOPDYPINE [Concomitant]
     Dosage: 5 MG DAILY
     Route: 065
  5. TICAGRELOR [Suspect]
     Active Substance: TICAGRELOR
     Indication: THROMBOSIS PROPHYLAXIS
     Route: 048
     Dates: start: 20150318
  6. BISOPROLOL [Concomitant]
     Active Substance: BISOPROLOL
     Dosage: 5 MG DAILY
     Route: 065
  7. EPTIFIBATIDE [Concomitant]
     Active Substance: EPTIFIBATIDE
     Route: 065
  8. CLOPIDOGREL [Concomitant]
     Active Substance: CLOPIDOGREL BISULFATE
     Indication: PERCUTANEOUS CORONARY INTERVENTION
     Dosage: 75 MG PER DAY
     Route: 065
     Dates: start: 20150219, end: 20150318
  9. STUDY PROCEDURE [Suspect]
     Active Substance: INVESTIGATIONAL PRODUCT
     Indication: THROMBOSIS PROPHYLAXIS
     Route: 065
  10. ATORVASTATIN [Concomitant]
     Active Substance: ATORVASTATIN
     Dosage: 40 MG DAILY
     Route: 065
  11. AMLOPDYPINE [Concomitant]
     Dosage: 5 MG DAILY
     Route: 065

REACTIONS (2)
  - Ventricular fibrillation [Fatal]
  - Thrombosis in device [Fatal]

NARRATIVE: CASE EVENT DATE: 20150318
